FAERS Safety Report 7909297-4 (Version None)
Quarter: 2011Q4

REPORT INFORMATION
  Report Type: 
  Country: None (occurrence: None)
  Receive Date: 20111111
  Receipt Date: 20111031
  Transmission Date: 20120403
  Serious: Yes (Other)
  Sender: FDA-Public Use
  Company Number: US-ELI_LILLY_AND_COMPANY-US201111000958

PATIENT
  Sex: Female
  Weight: 53.061 kg

DRUGS (22)
  1. OLANZAPINE [Suspect]
     Dosage: 300 MG, UNK
     Dates: start: 20110513, end: 20110526
  2. OLANZAPINE [Suspect]
     Dosage: 300 MG, UNK
     Dates: start: 20110916, end: 20110929
  3. OLANZAPINE [Suspect]
     Dosage: 300 MG, UNK
     Dates: start: 20111028
  4. AMLODIPINE [Concomitant]
     Dosage: 5 MG, UNK
     Route: 048
     Dates: start: 20110927
  5. OLANZAPINE [Suspect]
     Dosage: 300 MG, UNK
     Dates: start: 20110610, end: 20110623
  6. OLANZAPINE [Suspect]
     Dosage: 300 MG, UNK
     Dates: start: 20110708, end: 20110721
  7. OLANZAPINE [Suspect]
     Dosage: 300 MG, UNK
     Dates: start: 20110722, end: 20110804
  8. OLANZAPINE [Suspect]
     Dosage: 300 MG, UNK
     Dates: start: 20110819, end: 20110901
  9. OLANZAPINE [Suspect]
     Dosage: 300 MG, UNK
     Dates: start: 20110902, end: 20110915
  10. OLANZAPINE [Suspect]
     Dosage: 300 MG, UNK
     Dates: start: 20110930, end: 20111013
  11. LISINOPRIL [Concomitant]
     Dosage: 20 MG, UNKNOWN
     Route: 048
     Dates: start: 20110927
  12. OLANZAPINE [Suspect]
     Dosage: 300 MG, UNK
     Dates: start: 20110401, end: 20110414
  13. OLANZAPINE [Suspect]
     Dosage: 300 MG, UNK
     Dates: start: 20110527, end: 20110609
  14. TRILEPTAL [Concomitant]
     Dosage: 300 MG, UNKNOWN
     Route: 048
     Dates: start: 20100804
  15. OLANZAPINE [Suspect]
     Indication: SCHIZOPHRENIA
     Dosage: 300 MG, UNK
     Route: 030
     Dates: start: 20110304, end: 20110317
  16. OLANZAPINE [Suspect]
     Dosage: 300 MG, UNK
     Dates: start: 20110429, end: 20110512
  17. LEVOXYL [Concomitant]
     Dosage: 75 UG, UNKNOWN
     Route: 048
     Dates: start: 20101113
  18. OLANZAPINE [Suspect]
     Dosage: 300 MG, UNK
     Route: 030
     Dates: start: 20110318, end: 20110331
  19. OLANZAPINE [Suspect]
     Dosage: 300 MG, UNK
     Dates: start: 20110415, end: 20110428
  20. OLANZAPINE [Suspect]
     Dosage: 300 MG, UNK
     Dates: start: 20111014, end: 20111027
  21. OLANZAPINE [Suspect]
     Dosage: 300 MG, UNK
     Dates: start: 20110624, end: 20110707
  22. OLANZAPINE [Suspect]
     Dosage: 300 MG, UNK
     Dates: start: 20110805, end: 20110818

REACTIONS (7)
  - PALLOR [None]
  - CONVULSION [None]
  - DEPRESSED LEVEL OF CONSCIOUSNESS [None]
  - HYPERHIDROSIS [None]
  - TACHYCARDIA [None]
  - OXYGEN SATURATION DECREASED [None]
  - ASTHENIA [None]
